FAERS Safety Report 6100521-X (Version None)
Quarter: 2009Q1

REPORT INFORMATION
  Report Type: 
  Country: None (occurrence: None)
  Receive Date: 20090227
  Receipt Date: 20090227
  Transmission Date: 20090719
  Serious: Yes (Hospitalization)
  Sender: FDA-Public Use
  Company Number: None

PATIENT
  Sex: Male
  Weight: 90 kg

DRUGS (13)
  1. RITUXIMAB [Suspect]
     Indication: CHRONIC LYMPHOCYTIC LEUKAEMIA
     Dosage: 500MG/M2 Q 3 MONTHS IV
     Route: 042
     Dates: start: 20090218
  2. SULFAMETHOXAZOLE AND TRIMETHOPRIM [Suspect]
     Indication: PNEUMONIA
     Dosage: 1 BID Q M-W-F PO
     Route: 048
     Dates: start: 20090218
  3. . [Concomitant]
     Indication: PROPHYLAXIS
  4. ACTOS [Concomitant]
  5. VALSARTAN [Concomitant]
  6. SIMVASTATIN [Concomitant]
  7. AMLODIPINE [Concomitant]
  8. TIMOPTIC [Concomitant]
  9. TRAVATAN [Concomitant]
  10. ACYCLOVIR [Concomitant]
  11. BACTRIM [Concomitant]
  12. ZOLPIDEM [Concomitant]
  13. HYCODAN SYRUM [Concomitant]

REACTIONS (5)
  - ANAEMIA [None]
  - COUGH [None]
  - FATIGUE [None]
  - FEBRILE NEUTROPENIA [None]
  - SPUTUM DISCOLOURED [None]
